FAERS Safety Report 6510207-5 (Version None)
Quarter: 2009Q4

REPORT INFORMATION
  Report Type: 
  Country: None (occurrence: None)
  Receive Date: 20091217
  Receipt Date: 20091205
  Transmission Date: 20100525
  Serious: Yes (Other)
  Sender: FDA-Public Use
  Company Number: FR-GDP-09405530

PATIENT
  Sex: Female

DRUGS (1)
  1. EPIDUO [Suspect]
     Indication: ACNE
     Dosage: (1 DF QD TOPICAL)
     Route: 061
     Dates: start: 20090210, end: 20090210

REACTIONS (10)
  - APPLICATION SITE DISCOLOURATION [None]
  - DERMATITIS ATOPIC [None]
  - DYSPHAGIA [None]
  - ECZEMA WEEPING [None]
  - OEDEMA [None]
  - SCAB [None]
  - SKIN INDURATION [None]
  - SKIN TEST POSITIVE [None]
  - SPEECH DISORDER [None]
  - SWELLING FACE [None]
